FAERS Safety Report 13288866 (Version 5)
Quarter: 2021Q4

REPORT INFORMATION
  Report Type: Spontaneous
  Country: US (occurrence: US)
  Receive Date: 20170302
  Receipt Date: 20211004
  Transmission Date: 20220304
  Serious: No
  Sender: FDA-Public Use
  Company Number: US-PFIZER INC-2017091257

PATIENT
  Age: 31 Year
  Sex: Female
  Weight: 159.4 kg

DRUGS (3)
  1. SOMAVERT [Suspect]
     Active Substance: PEGVISOMANT
     Indication: Acromegaly
     Dosage: 40 MG, ONCE A DAY
  2. SOMAVERT [Suspect]
     Active Substance: PEGVISOMANT
     Dosage: 30 MG, DAILY
     Dates: start: 20150711, end: 2016
  3. SOMAVERT [Suspect]
     Active Substance: PEGVISOMANT
     Dosage: 30 MG
     Dates: start: 20210701

REACTIONS (3)
  - Drug ineffective [Unknown]
  - Insulin-like growth factor increased [Unknown]
  - Diarrhoea [Unknown]
